FAERS Safety Report 7405152-7 (Version None)
Quarter: 2011Q2

REPORT INFORMATION
  Report Type: 
  Country: None (occurrence: None)
  Receive Date: 20110411
  Receipt Date: 20110407
  Transmission Date: 20111010
  Serious: Yes (Hospitalization)
  Sender: FDA-Public Use
  Company Number: BE-BRISTOL-MYERS SQUIBB COMPANY-15660988

PATIENT
  Sex: Female

DRUGS (5)
  1. LORAZEPAM [Concomitant]
     Dosage: 1DF=4X1/2 TABLET. STRENGTH:1MG
  2. SIPRALEXA [Concomitant]
     Dosage: 1DF=2 TABLETS IN THE MORNING.
  3. DOMINAL [Concomitant]
     Dosage: 1ST TIME TAKEN 14 HOURS BEFORE EVENT
  4. PANTOMED [Concomitant]
     Dosage: 2X40MG. SINCE 2 WEEKS
  5. ABILIFY [Suspect]
     Indication: BIPOLAR DISORDER

REACTIONS (3)
  - FALL [None]
  - SKULL FRACTURE [None]
  - LOSS OF CONSCIOUSNESS [None]
